FAERS Safety Report 6003621-8 (Version None)
Quarter: 2008Q4

REPORT INFORMATION
  Report Type: 
  Country: None (occurrence: None)
  Receive Date: 20081216
  Receipt Date: 20081203
  Transmission Date: 20090506
  Serious: Yes (Other)
  Sender: FDA-Public Use
  Company Number: DE-PFIZER INC-2008150531

PATIENT

DRUGS (13)
  1. PREGABALIN [Suspect]
     Dosage: 75 MG, 1X/DAY
     Route: 048
     Dates: start: 20081113, end: 20081122
  2. METAMIZOLE [Suspect]
     Dosage: UNK
     Dates: start: 20081122
  3. RAMIPRIL [Concomitant]
  4. ATENOLOL [Concomitant]
  5. PREDNISOLONE AND PREDNISOLONE STEAGLATE [Concomitant]
  6. EINSALPHA [Concomitant]
  7. MOLSIKET - SLOW RELEASE [Concomitant]
  8. ACTRAPHANE HM [Concomitant]
  9. SIOFOR [Concomitant]
  10. NEURO-B FORTE NEU [Concomitant]
  11. TIOTROPIUM BROMIDE MONOHYDRATE [Concomitant]
  12. VIANI [Concomitant]
  13. PLAVIX [Concomitant]

REACTIONS (3)
  - BLOOD PRESSURE INCREASED [None]
  - EPISTAXIS [None]
  - FEELING DRUNK [None]
